FAERS Safety Report 23037803 (Version 1)
Quarter: 2023Q4

REPORT INFORMATION
  Report Type: Spontaneous
  Country: CA (occurrence: CA)
  Receive Date: 20231006
  Receipt Date: 20231006
  Transmission Date: 20240110
  Serious: Yes (Other)
  Sender: FDA-Public Use
  Company Number: CA-ANIPHARMA-2023-CA-003050

PATIENT
  Age: 53 Year
  Sex: Male
  Weight: 72 kg

DRUGS (10)
  1. CANDESARTAN [Suspect]
     Active Substance: CANDESARTAN
     Indication: Product used for unknown indication
     Route: 048
  2. PRAVASTATIN SODIUM [Suspect]
     Active Substance: PRAVASTATIN SODIUM
     Route: 048
  3. ROSUVASTATIN [Suspect]
     Active Substance: ROSUVASTATIN
     Route: 048
  4. ASPIRIN [Concomitant]
     Active Substance: ASPIRIN
     Dosage: 1 EVERY 1 DAYS
     Route: 048
  5. BRILINTA [Suspect]
     Active Substance: TICAGRELOR
     Route: 048
  6. METOPROLOL [Suspect]
     Active Substance: METOPROLOL
     Route: 065
  7. RAMIPRIL [Suspect]
     Active Substance: RAMIPRIL
     Route: 048
  8. ATORVASTATIN CALCIUM [Suspect]
     Active Substance: ATORVASTATIN CALCIUM
     Route: 065
  9. AVAPRO [Suspect]
     Active Substance: IRBESARTAN
     Route: 065
  10. DULOXETINE HYDROCHLORIDE [Suspect]
     Active Substance: DULOXETINE HYDROCHLORIDE
     Route: 048

REACTIONS (7)
  - Angina pectoris [Recovered/Resolved with Sequelae]
  - Blood urine present [Recovered/Resolved with Sequelae]
  - Cough [Recovered/Resolved with Sequelae]
  - Disturbance in attention [Recovered/Resolved with Sequelae]
  - Gait disturbance [Recovered/Resolved with Sequelae]
  - Loss of control of legs [Recovered/Resolved with Sequelae]
  - Pain in extremity [Recovered/Resolved with Sequelae]
